FAERS Safety Report 9601042 (Version 2)
Quarter: 2013Q4

REPORT INFORMATION
  Report Type: Spontaneous
  Country: US (occurrence: US)
  Receive Date: 20131004
  Receipt Date: 20131004
  Transmission Date: 20140711
  Serious: Yes (Other)
  Sender: FDA-Public Use
  Company Number: US-AMGEN-USASP2013038707

PATIENT
  Age: 60 Year
  Sex: Female
  Weight: 68.93 kg

DRUGS (9)
  1. ENBREL [Suspect]
     Indication: RHEUMATOID ARTHRITIS
     Dosage: 50 MG, QWK
     Route: 058
     Dates: start: 20130426
  2. LISINOPRIL [Concomitant]
     Dosage: 10 MG, UNK
  3. PLAQUENIL                          /00072602/ [Concomitant]
     Dosage: 200 MG, UNK
  4. METHOTREXATE [Concomitant]
     Dosage: 2.5 MG, UNK
  5. FOLIC ACID [Concomitant]
     Dosage: UNK
  6. NORVASC [Concomitant]
     Dosage: 2.5 MG, UNK
  7. AMITRIPTYLIN [Concomitant]
     Dosage: 100 MG, UNK
  8. NEXIUM                             /01479302/ [Concomitant]
     Dosage: 40 MG, UNK
  9. TRICORT [Concomitant]
     Dosage: 145 MG, UNK

REACTIONS (1)
  - Urinary tract infection [Recovered/Resolved]
